FAERS Safety Report 12137243 (Version 1)
Quarter: 2016Q1

REPORT INFORMATION
  Report Type: Spontaneous
  Country: US (occurrence: US)
  Receive Date: 20160302
  Receipt Date: 20160302
  Transmission Date: 20160526
  Serious: No
  Sender: FDA-Public Use
  Company Number: US-INSYS THERAPEUTICS, INC-INS201510-000473

PATIENT
  Sex: Female
  Weight: 97.07 kg

DRUGS (2)
  1. SUBSYS [Suspect]
     Active Substance: FENTANYL
     Indication: BREAKTHROUGH PAIN
  2. SUBSYS [Suspect]
     Active Substance: FENTANYL
     Route: 060
     Dates: start: 2015

REACTIONS (5)
  - Dry mouth [Unknown]
  - Speech disorder [Unknown]
  - Application site irritation [Unknown]
  - Product quality issue [Unknown]
  - Somnolence [Unknown]

NARRATIVE: CASE EVENT DATE: 2015
